FAERS Safety Report 7141908-6 (Version None)
Quarter: 2010Q4

REPORT INFORMATION
  Report Type: 
  Country: None (occurrence: None)
  Receive Date: 20101117
  Receipt Date: 20100722
  Transmission Date: 20110411
  Serious: No
  Sender: FDA-Public Use
  Company Number: WAES 1007USA02876

PATIENT
  Age: 50 Year
  Sex: Male

DRUGS (10)
  1. ISENTRESS [Suspect]
     Indication: HIV INFECTION
     Dosage: 400 MG/BID/PO
     Route: 048
     Dates: start: 20100310, end: 20100614
  2. BACTRIM [Concomitant]
  3. INTELENCE [Concomitant]
  4. LASIX [Concomitant]
  5. LOTREL [Concomitant]
  6. NEXIUM [Concomitant]
  7. PREZISTA [Concomitant]
  8. ZYPREXA [Concomitant]
  9. ATENOLOL [Concomitant]
  10. RANITIDINE [Concomitant]

REACTIONS (3)
  - ALDOLASE INCREASED [None]
  - BLOOD CREATINE PHOSPHOKINASE INCREASED [None]
  - FLANK PAIN [None]
